FAERS Safety Report 18833233 (Version 1)
Quarter: 2021Q1

REPORT INFORMATION
  Report Type: Spontaneous
  Country: US (occurrence: US)
  Receive Date: 20210203
  Receipt Date: 20210203
  Transmission Date: 20210419
  Serious: No
  Sender: FDA-Public Use
  Company Number: US-ALLERGAN-2033579US

PATIENT

DRUGS (1)
  1. BOTOX [Suspect]
     Active Substance: ONABOTULINUMTOXINA
     Indication: MIGRAINE
     Dosage: 32 INJECTIONS

REACTIONS (5)
  - Haematoma [Unknown]
  - Skin wrinkling [Not Recovered/Not Resolved]
  - Fatigue [Unknown]
  - Eyelid ptosis [Unknown]
  - Neck pain [Unknown]
